FAERS Safety Report 22005673 (Version 2)
Quarter: 2023Q1

REPORT INFORMATION
  Report Type: Spontaneous
  Country: CA (occurrence: CA)
  Receive Date: 20230217
  Receipt Date: 20230329
  Transmission Date: 20230417
  Serious: Yes (Death)
  Sender: FDA-Public Use
  Company Number: CA-PFIZER INC-PV202300030341

PATIENT
  Age: 57 Year
  Sex: Female

DRUGS (1)
  1. LORBRENA [Suspect]
     Active Substance: LORLATINIB
     Dosage: UNK
     Dates: start: 20180901

REACTIONS (1)
  - Neoplasm progression [Fatal]
